FAERS Safety Report 5256739-1 (Version None)
Quarter: 2007Q1

REPORT INFORMATION
  Report Type: 
  Country: None (occurrence: None)
  Receive Date: 20070306
  Receipt Date: 20070222
  Transmission Date: 20070707
  Serious: Yes (Other)
  Sender: FDA-Public Use
  Company Number: US-PFIZER INC-2007015185

PATIENT
  Sex: Male
  Weight: 11.3 kg

DRUGS (3)
  1. ZYVOX [Suspect]
     Indication: STAPHYLOCOCCAL INFECTION
     Dosage: FREQ:INTERVAL: EVERY DAY
     Route: 042
  2. TACROLIMUS [Concomitant]
  3. MAGNESIUM GLUCONATE [Concomitant]

REACTIONS (2)
  - RESPIRATORY SYNCYTIAL VIRUS INFECTION [None]
  - VIRAL INFECTION [None]
